FAERS Safety Report 18125661 (Version 3)
Quarter: 2020Q3

REPORT INFORMATION
  Report Type: Report from Study
  Country: DE (occurrence: DE)
  Receive Date: 20200807
  Receipt Date: 20200903
  Transmission Date: 20201103
  Serious: Yes (Other)
  Sender: FDA-Public Use
  Company Number: DE-VERTEX PHARMACEUTICALS-2020-015876

PATIENT
  Age: 26 Year
  Sex: Male
  Weight: 46 kg

DRUGS (23)
  1. ELEXACAFTOR/TEZACAFTOR/IVACAFTOR AND IVACAFTOR [Suspect]
     Active Substance: ELEXACAFTOR\IVACAFTOR\TEZACAFTOR
     Dosage: 2 TABS(100 MG ELEXACAFTOR/ 50 MG TEZACAFTOR/ 75 MG IVACAFTOR) IN AM; 1 TAB(150MG IVACAFTOR) IN PM
     Route: 048
     Dates: start: 20200528, end: 20200722
  2. COLISTIN [Concomitant]
     Active Substance: COLISTIN
  3. NACL [Concomitant]
     Active Substance: SODIUM CHLORIDE
  4. KALINOR [POTASSIUM CHLORIDE] [Concomitant]
     Active Substance: POTASSIUM CHLORIDE
  5. MAGNESIUM [Concomitant]
     Active Substance: MAGNESIUM
  6. ELEXACAFTOR/TEZACAFTOR/IVACAFTOR AND IVACAFTOR [Suspect]
     Active Substance: ELEXACAFTOR\IVACAFTOR\TEZACAFTOR
     Indication: CYSTIC FIBROSIS
     Dosage: 2 TABS(100 MG ELEXACAFTOR/ 50 MG TEZACAFTOR/ 75 MG IVACAFTOR) IN AM
     Route: 048
     Dates: start: 20200511, end: 20200527
  7. CEFACLOR. [Concomitant]
     Active Substance: CEFACLOR
  8. HUMALOG [Concomitant]
     Active Substance: INSULIN LISPRO
  9. UDC [Concomitant]
  10. SPIOLTO RESPIMAT [Concomitant]
     Active Substance: OLODATEROL HYDROCHLORIDE\TIOTROPIUM BROMIDE MONOHYDRATE
  11. FOLSAN [Concomitant]
     Active Substance: FOLIC ACID
  12. ADEK [Concomitant]
  13. DECORTIN [Concomitant]
     Active Substance: PREDNISONE
  14. ELEXACAFTOR/TEZACAFTOR/IVACAFTOR AND IVACAFTOR [Suspect]
     Active Substance: ELEXACAFTOR\IVACAFTOR\TEZACAFTOR
     Dosage: ONE MORNING DOSE OF ELEXACAFTOR/ TEZACAFTOR/ IVACAFTOR ALTERNATING WITH 2 MORNING DOSES
     Route: 048
     Dates: start: 20200723, end: 2020
  15. ACC [ACETYLCYSTEINE] [Concomitant]
     Active Substance: ACETYLCYSTEINE
  16. KREON [Concomitant]
     Active Substance: PANCRELIPASE
  17. ITRACONAZOL [Concomitant]
     Active Substance: ITRACONAZOLE
     Dosage: UNK
     Dates: end: 20200413
  18. ELEXACAFTOR/TEZACAFTOR/IVACAFTOR AND IVACAFTOR [Suspect]
     Active Substance: ELEXACAFTOR\IVACAFTOR\TEZACAFTOR
     Dosage: ONE MORNING DOSE ONLY
     Route: 048
     Dates: start: 2020
  19. ATROVENT [Concomitant]
     Active Substance: IPRATROPIUM BROMIDE
  20. PULMOZYME [Concomitant]
     Active Substance: DORNASE ALFA
  21. NOVALGIN [CAFFEINE;PARACETAMOL;PROPYPHENAZONE] [Concomitant]
     Active Substance: ACETAMINOPHEN\CAFFEINE\PROPYPHENAZONE
  22. LANTUS [Concomitant]
     Active Substance: INSULIN GLARGINE
  23. BUDESONID [Concomitant]
     Active Substance: BUDESONIDE

REACTIONS (2)
  - Platelet count decreased [Recovering/Resolving]
  - Prothrombin time prolonged [Recovering/Resolving]

NARRATIVE: CASE EVENT DATE: 20200715
